FAERS Safety Report 25743417 (Version 1)
Quarter: 2025Q3

REPORT INFORMATION
  Report Type: Spontaneous
  Country: AU (occurrence: AU)
  Receive Date: 20250830
  Receipt Date: 20250830
  Transmission Date: 20251021
  Serious: Yes (Hospitalization, Other)
  Sender: AMGEN
  Company Number: AU-AMGEN-AUSSP2025168450

PATIENT
  Age: 84 Year
  Sex: Male

DRUGS (2)
  1. PROLIA [Suspect]
     Active Substance: DENOSUMAB
     Indication: Osteoporosis
     Route: 058
  2. IRON [Suspect]
     Active Substance: IRON
     Indication: Iron deficiency
     Route: 040

REACTIONS (7)
  - Hypophosphataemia [Unknown]
  - Hypocalcaemia [Unknown]
  - Prostate cancer metastatic [Unknown]
  - Metastases to bone [Unknown]
  - Drug interaction [Unknown]
  - Iron deficiency [Unknown]
  - Off label use [Unknown]
